FAERS Safety Report 5521628-1 (Version None)
Quarter: 2007Q4

REPORT INFORMATION
  Report Type: 
  Country: None (occurrence: None)
  Receive Date: 20071119
  Receipt Date: 20071119
  Transmission Date: 20080405
  Serious: Yes (Other)
  Sender: FDA-Public Use
  Company Number: None

PATIENT
  Age: 54 Year
  Sex: Female
  Weight: 72.5755 kg

DRUGS (1)
  1. CELEBREX [Suspect]
     Indication: TENDONITIS
     Dosage: ONE CAPSULE  DAILY  PO
     Route: 048
     Dates: start: 20071113, end: 20071115

REACTIONS (2)
  - DYSURIA [None]
  - URINARY RETENTION [None]
